FAERS Safety Report 10020929 (Version 1)
Quarter: 2014Q1

REPORT INFORMATION
  Report Type: Spontaneous
  Country: IL (occurrence: IL)
  Receive Date: 20140319
  Receipt Date: 20140319
  Transmission Date: 20141002
  Serious: Yes (Other)
  Sender: FDA-Public Use
  Company Number: IL-JNJFOC-20140307429

PATIENT
  Age: 37 Year
  Sex: Male

DRUGS (4)
  1. TOPIRAMATE [Suspect]
     Indication: DISTURBANCE IN SOCIAL BEHAVIOUR
     Route: 048
  2. RISPERIDONE [Suspect]
     Indication: DISTURBANCE IN SOCIAL BEHAVIOUR
     Route: 065
  3. SERTRALINE [Suspect]
     Indication: DISTURBANCE IN SOCIAL BEHAVIOUR
     Route: 065
  4. CLOTIAPINE [Suspect]
     Indication: DISTURBANCE IN SOCIAL BEHAVIOUR
     Route: 065

REACTIONS (4)
  - Mania [Unknown]
  - Foreign body [Unknown]
  - Abdominal pain [Unknown]
  - Off label use [Unknown]
